FAERS Safety Report 6377719-9 (Version None)
Quarter: 2009Q3

REPORT INFORMATION
  Report Type: 
  Country: None (occurrence: None)
  Receive Date: 20090925
  Receipt Date: 20090828
  Transmission Date: 20100115
  Serious: Yes (Hospitalization)
  Sender: FDA-Public Use
  Company Number: JP-PFIZER INC-2009259206

PATIENT
  Age: 81 Year

DRUGS (5)
  1. MIGLITOL [Suspect]
     Indication: DIABETES MELLITUS
     Dosage: UNK MG, UNK
     Route: 048
     Dates: start: 20090706, end: 20090817
  2. NORVASC [Concomitant]
     Indication: HYPERTENSION
     Dosage: 2.5 MG, UNK
     Route: 048
     Dates: start: 20040101
  3. CRESTOR [Concomitant]
     Indication: HYPERLIPIDAEMIA
     Dosage: 2.5 MG, UNK
     Route: 048
     Dates: start: 20070101
  4. RENIVACE [Concomitant]
     Indication: HYPERTENSION
     Dosage: 10 MG, UNK
     Route: 048
     Dates: start: 20040101
  5. AMARYL [Concomitant]
     Indication: DIABETES MELLITUS
     Dosage: UNK
     Route: 048
     Dates: start: 20050101

REACTIONS (2)
  - DIZZINESS [None]
  - SYNCOPE [None]
